FAERS Safety Report 4898918-9 (Version None)
Quarter: 2006Q1

REPORT INFORMATION
  Report Type: 
  Country: None (occurrence: None)
  Receive Date: 20060106
  Receipt Date: 20051010
  Transmission Date: 20060701
  Serious: No
  Sender: FDA-Public Use
  Company Number: 200512160BWH

PATIENT
  Age: 65 Year
  Sex: Male
  Weight: 100.2449 kg

DRUGS (1)
  1. LEVITRA [Suspect]
     Dosage: ONCE, ORAL
     Route: 048
     Dates: start: 20051009

REACTIONS (1)
  - VISUAL DISTURBANCE [None]
